FAERS Safety Report 6028205-7 (Version None)
Quarter: 2009Q1

REPORT INFORMATION
  Report Type: 
  Country: None (occurrence: None)
  Receive Date: 20090106
  Receipt Date: 20081229
  Transmission Date: 20090719
  Serious: No
  Sender: FDA-Public Use
  Company Number: ES-JNJFOC-20090100143

PATIENT

DRUGS (1)
  1. RISPERDAL CONSTA [Suspect]
     Indication: SCHIZOPHRENIA
     Dosage: 75 MG ONCE EVERY 14 DAYS OVER A YEAR
     Route: 030

REACTIONS (2)
  - BLOOD DISORDER [None]
  - OVERDOSE [None]
